FAERS Safety Report 10284251 (Version 4)
Quarter: 2015Q1

REPORT INFORMATION
  Report Type: Spontaneous
  Country: US (occurrence: US)
  Receive Date: 20140708
  Receipt Date: 20150123
  Transmission Date: 20150720
  Serious: Yes (Other)
  Sender: FDA-Public Use
  Company Number: US-JNJFOC-20140700899

PATIENT
  Age: 82 Year
  Sex: Female

DRUGS (2)
  1. MULTIPLE MEDICATIONS UNSPECIFIED [Concomitant]
     Active Substance: UNSPECIFIED INGREDIENT
  2. INVOKANA [Suspect]
     Active Substance: CANAGLIFLOZIN
     Indication: TYPE 2 DIABETES MELLITUS
     Route: 065

REACTIONS (2)
  - Stevens-Johnson syndrome [Recovered/Resolved]
  - Blister [Recovered/Resolved]
